FAERS Safety Report 17400494 (Version 1)
Quarter: 2020Q1

REPORT INFORMATION
  Report Type: Spontaneous
  Country: US (occurrence: US)
  Receive Date: 20200208
  Receipt Date: 20200208
  Transmission Date: 20200409
  Serious: Yes (Disabling)
  Sender: FDA-Public Use
  Company Number: None

PATIENT
  Age: 43 Year
  Sex: Female
  Weight: 103.5 kg

DRUGS (14)
  1. LISINOPRIL. [Concomitant]
     Active Substance: LISINOPRIL
  2. VITAMIN D3 [Concomitant]
     Active Substance: CHOLECALCIFEROL
  3. PRISTIQ EXTENDED-RELEASE [Concomitant]
     Active Substance: DESVENLAFAXINE SUCCINATE
  4. KELP [Concomitant]
     Active Substance: KELP
  5. MAGNESIUM [Concomitant]
     Active Substance: MAGNESIUM
  6. TOPIRAMATE. [Concomitant]
     Active Substance: TOPIRAMATE
  7. AMANTADINE. [Suspect]
     Active Substance: AMANTADINE HYDROCHLORIDE
     Indication: MULTIPLE SCLEROSIS
     Route: 048
  8. K2 [Concomitant]
     Active Substance: JWH-018
  9. COQ10 [Concomitant]
     Active Substance: UBIDECARENONE
  10. MECLAZINE [Concomitant]
  11. LIVER [Concomitant]
     Active Substance: MAMMAL LIVER
  12. AMANTADINE. [Suspect]
     Active Substance: AMANTADINE HYDROCHLORIDE
     Indication: FATIGUE
     Route: 048
  13. BETASERON [Concomitant]
     Active Substance: INTERFERON BETA-1B
  14. CITALOPRAM [Concomitant]
     Active Substance: CITALOPRAM HYDROBROMIDE

REACTIONS (3)
  - Suicidal ideation [None]
  - Arthralgia [None]
  - Insomnia [None]
